FAERS Safety Report 4642494-2 (Version None)
Quarter: 2005Q2

REPORT INFORMATION
  Report Type: 
  Country: None (occurrence: None)
  Receive Date: 20050420
  Receipt Date: 20050420
  Transmission Date: 20051028
  Serious: Yes (Hospitalization)
  Sender: FDA-Public Use
  Company Number: None

PATIENT
  Age: 77 Year
  Sex: Male
  Weight: 163.2949 kg

DRUGS (1)
  1. VANCOMYCIN [Suspect]
     Indication: STAPHYLOCOCCAL BACTERAEMIA
     Dosage: 1750 MG DAILY INTRAVENOUS
     Route: 042
     Dates: start: 20050328, end: 20050411

REACTIONS (3)
  - ERYTHEMA [None]
  - RASH MORBILLIFORM [None]
  - RASH PRURITIC [None]
